FAERS Safety Report 13233999 (Version 1)
Quarter: 2017Q1

REPORT INFORMATION
  Report Type: Spontaneous
  Country: CA (occurrence: CA)
  Receive Date: 20170215
  Receipt Date: 20170215
  Transmission Date: 20170428
  Serious: Yes (Other)
  Sender: FDA-Public Use
  Company Number: CA-CONCORDIA PHARMACEUTICALS INC.-E2B_00008022

PATIENT
  Age: 52 Year
  Sex: Female

DRUGS (18)
  1. METHOTREXATE. [Suspect]
     Active Substance: METHOTREXATE
     Route: 048
  2. PREDNISONE. [Concomitant]
     Active Substance: PREDNISONE
     Route: 065
  3. LANTUS [Concomitant]
     Active Substance: INSULIN GLARGINE
     Route: 065
  4. ACTEMRA [Suspect]
     Active Substance: TOCILIZUMAB
     Indication: RHEUMATOID ARTHRITIS
     Route: 042
  5. METFORMIN [Concomitant]
     Active Substance: METFORMIN HYDROCHLORIDE
     Route: 065
  6. PLAQUENIL [Suspect]
     Active Substance: HYDROXYCHLOROQUINE SULFATE
     Indication: RHEUMATOID ARTHRITIS
     Route: 048
     Dates: start: 2009, end: 2014
  7. ENBREL [Suspect]
     Active Substance: ETANERCEPT
     Indication: RHEUMATOID ARTHRITIS
     Route: 058
     Dates: start: 20101004, end: 20110416
  8. METHOTREXATE. [Suspect]
     Active Substance: METHOTREXATE
     Indication: PRODUCT USED FOR UNKNOWN INDICATION
     Route: 048
     Dates: start: 2009
  9. METHOTREXATE. [Suspect]
     Active Substance: METHOTREXATE
     Route: 030
  10. ORENCIA [Suspect]
     Active Substance: ABATACEPT
     Indication: RHEUMATOID ARTHRITIS
     Route: 042
     Dates: start: 2012, end: 2014
  11. METHOTREXATE. [Suspect]
     Active Substance: METHOTREXATE
     Indication: RHEUMATOID ARTHRITIS
     Route: 030
     Dates: end: 2014
  12. VITAMIN D [Concomitant]
     Active Substance: CHOLECALCIFEROL
     Route: 065
  13. ARAVA [Suspect]
     Active Substance: LEFLUNOMIDE
     Indication: RHEUMATOID ARTHRITIS
     Route: 048
     Dates: start: 2010
  14. CALCIUM [Concomitant]
     Active Substance: CALCIUM
     Route: 065
  15. RAMIPRIL. [Concomitant]
     Active Substance: RAMIPRIL
     Route: 065
  16. ASA [Concomitant]
     Active Substance: ASPIRIN
     Route: 065
  17. LOZIDE [Concomitant]
     Active Substance: INDAPAMIDE
     Route: 065
  18. NAPROSYN [Concomitant]
     Active Substance: NAPROXEN
     Route: 065

REACTIONS (7)
  - Condition aggravated [Not Recovered/Not Resolved]
  - Impaired work ability [Not Recovered/Not Resolved]
  - Red blood cell sedimentation rate abnormal [Not Recovered/Not Resolved]
  - Interstitial lung disease [Not Recovered/Not Resolved]
  - Rheumatoid arthritis [Not Recovered/Not Resolved]
  - Drug ineffective [Unknown]
  - Drug effect decreased [Unknown]

NARRATIVE: CASE EVENT DATE: 20101004
